FAERS Safety Report 8610239-7 (Version None)
Quarter: 2012Q3

REPORT INFORMATION
  Report Type: 
  Country: None (occurrence: None)
  Receive Date: 20120810
  Receipt Date: 20120810
  Transmission Date: 20120928
  Serious: No
  Sender: FDA-Public Use
  Company Number: None

PATIENT
  Age: 38 Year
  Sex: Female
  Weight: 101.6057 kg

DRUGS (1)
  1. LATUDA [Suspect]
     Indication: AFFECTIVE DISORDER
     Dosage: 40MG 1 PER DAY PO
     Route: 048
     Dates: start: 20120505, end: 20120802

REACTIONS (2)
  - EYE IRRITATION [None]
  - VISION BLURRED [None]
